FAERS Safety Report 5875595-1 (Version None)
Quarter: 2008Q3

REPORT INFORMATION
  Report Type: 
  Country: None (occurrence: None)
  Receive Date: 20080909
  Receipt Date: 20080826
  Transmission Date: 20090109
  Serious: No
  Sender: FDA-Public Use
  Company Number: US-B.I. PHARMACEUTICALS,INC./RIDGEFIELD-2008-BP-13748BP

PATIENT
  Sex: Male

DRUGS (7)
  1. SPIRIVA [Suspect]
     Route: 055
     Dates: start: 20071101
  2. COMBIVENT [Concomitant]
     Route: 055
     Dates: start: 20060101
  3. SIMVAASTATIN [Concomitant]
  4. NAPROSYN [Concomitant]
  5. PLAVIX [Concomitant]
  6. TOPROL-XL [Concomitant]
  7. LISINOPRIL [Concomitant]

REACTIONS (2)
  - DRUG EFFECT DECREASED [None]
  - ORAL DISORDER [None]
